FAERS Safety Report 12921813 (Version 1)
Quarter: 2016Q4

REPORT INFORMATION
  Report Type: Spontaneous
  Country: SE (occurrence: SE)
  Receive Date: 20161108
  Receipt Date: 20161108
  Transmission Date: 20170207
  Serious: Yes (Other)
  Sender: FDA-Public Use
  Company Number: SE-SA-2016SA201344

PATIENT
  Age: 58 Year
  Sex: Female

DRUGS (5)
  1. ARAVA [Suspect]
     Active Substance: LEFLUNOMIDE
     Indication: POLYARTHRITIS
     Route: 048
     Dates: start: 20160519, end: 20160831
  2. SIMPONI [Suspect]
     Active Substance: GOLIMUMAB
     Indication: POLYARTHRITIS
     Route: 065
     Dates: start: 20160615, end: 20160831
  3. SALAZOPYRIN [Concomitant]
     Active Substance: SULFASALAZINE
     Route: 065
  4. PLAQUENIL [Concomitant]
     Active Substance: HYDROXYCHLOROQUINE SULFATE
     Route: 065
  5. PREDNISOLONE. [Suspect]
     Active Substance: PREDNISOLONE
     Indication: POLYARTHRITIS
     Route: 065
     Dates: start: 20160519

REACTIONS (1)
  - Renal abscess [Not Recovered/Not Resolved]

NARRATIVE: CASE EVENT DATE: 20160831
